FAERS Safety Report 5357980-X (Version None)
Quarter: 2007Q2

REPORT INFORMATION
  Report Type: 
  Country: None (occurrence: None)
  Receive Date: 20070530
  Receipt Date: 20061228
  Transmission Date: 20071010
  Serious: Yes (Other)
  Sender: FDA-Public Use
  Company Number: US200612003558

PATIENT
  Age: 25 Year
  Sex: Male
  Weight: 100.9 kg

DRUGS (6)
  1. ZYPREXA [Suspect]
     Indication: MANIA
     Dosage: 10 MG, ORAL . 15 MG, ORAL
     Route: 048
     Dates: start: 20061102, end: 20061105
  2. ZYPREXA [Suspect]
     Indication: MANIA
     Dosage: 10 MG, ORAL . 15 MG, ORAL
     Route: 048
     Dates: start: 20061106, end: 20061113
  3. ZYPREXA [Suspect]
  4. ZIPRASIDONE [Concomitant]
  5. MIRTAZAPINE [Concomitant]
  6. ACETAMINOPHEN [Concomitant]

REACTIONS (5)
  - ALANINE AMINOTRANSFERASE INCREASED [None]
  - ASPARTATE AMINOTRANSFERASE INCREASED [None]
  - GAMMA-GLUTAMYLTRANSFERASE INCREASED [None]
  - OEDEMA PERIPHERAL [None]
  - TOOTH EXTRACTION [None]
